FAERS Safety Report 9553546 (Version 1)
Quarter: 2013Q2

REPORT INFORMATION
  Report Type: Spontaneous
  Country: US (occurrence: None)
  Receive Date: 20130507
  Receipt Date: 20130507
  Transmission Date: 20140414
  Serious: Yes (Other)
  Sender: FDA-Public Use
  Company Number: PHEH2012US022017

PATIENT
  Age: 24 Year
  Sex: Female

DRUGS (1)
  1. TASIGNA (AMN107) CAPSULE [Suspect]
     Indication: CHRONIC MYELOID LEUKAEMIA
     Route: 048

REACTIONS (6)
  - Neoplasm [None]
  - Hypersensitivity [None]
  - Malignant neoplasm progression [None]
  - Sneezing [None]
  - Rhinorrhoea [None]
  - Epistaxis [None]
